FAERS Safety Report 21776846 (Version 1)
Quarter: 2022Q4

REPORT INFORMATION
  Report Type: Spontaneous
  Country: ES (occurrence: ES)
  Receive Date: 20221226
  Receipt Date: 20221226
  Transmission Date: 20230112
  Serious: Yes (Other)
  Sender: FDA-Public Use
  Company Number: ES-MLMSERVICE-20221212-3977670-1

PATIENT

DRUGS (1)
  1. LOSARTAN [Suspect]
     Active Substance: LOSARTAN
     Indication: Product used for unknown indication
     Dosage: 50 MILLIGRAM, QD
     Route: 065

REACTIONS (3)
  - Faecal calprotectin increased [Recovered/Resolved]
  - Gastrointestinal disorder [Recovered/Resolved]
  - Hypoalbuminaemia [Recovered/Resolved]
